FAERS Safety Report 6528993-7 (Version None)
Quarter: 2009Q4

REPORT INFORMATION
  Report Type: 
  Country: None (occurrence: None)
  Receive Date: 20091224
  Receipt Date: 20091217
  Transmission Date: 20100525
  Serious: Yes (Death)
  Sender: FDA-Public Use
  Company Number: 2009120049

PATIENT
  Age: 97 Year
  Sex: Female

DRUGS (9)
  1. TOREM(TORASEMIDE) [Suspect]
     Indication: MYOCARDIAL ISCHAEMIA
     Dosage: 7.5 MG (7.5 MG,1 IN 1 D),ORAL
     Route: 048
  2. DOXIUM(CALCIUM DOBESILATE) [Suspect]
     Indication: MACULAR DEGENERATION
     Dosage: 1000 MG (1000 MG,1 IN 1 D),ORAL
     Route: 048
     Dates: start: 20090116, end: 20090320
  3. NORVASC [Suspect]
     Indication: ESSENTIAL HYPERTENSION
     Dosage: 10 MG (10 MG,1 IN 1 D),ORAL
     Route: 048
  4. ASPIRIN [Suspect]
     Dosage: (1 IN 1 D),ORAL
     Route: 048
  5. ACETAMINOPHEN [Suspect]
     Dosage: 1000 MG (500 MG,2 IN 1 D),ORAL
     Route: 048
  6. PANTOPRAZOLE SODIUM [Suspect]
     Dosage: 40 MG (40 MG,1 IN 1 D),ORAL
     Route: 048
  7. METOPROLOL SUCCINATE [Concomitant]
  8. CALCIMAGON-D 3(COLECALCIFEROL, CALCIUM CARBONATE) [Concomitant]
  9. TRANSIPEG (MACROGOL) [Concomitant]

REACTIONS (8)
  - ANAEMIA [None]
  - DIET REFUSAL [None]
  - FEMORAL HERNIA [None]
  - INFECTION [None]
  - LEUKOPENIA [None]
  - REFUSAL OF TREATMENT BY PATIENT [None]
  - SOMNOLENCE [None]
  - SUICIDAL IDEATION [None]
